FAERS Safety Report 23926455 (Version 1)
Quarter: 2024Q2

REPORT INFORMATION
  Report Type: Report from Study
  Country: DE (occurrence: DE)
  Receive Date: 20240531
  Receipt Date: 20240531
  Transmission Date: 20240716
  Serious: Yes (Other)
  Sender: FDA-Public Use
  Company Number: DE-Stemline Therapeutics, Inc.-2024ST003143

PATIENT
  Age: 55 Year
  Sex: Female

DRUGS (1)
  1. ORSERDU [Suspect]
     Active Substance: ELACESTRANT
     Indication: Product used for unknown indication
     Dosage: ELACESTRANT BLISTER 28 COUNT CARTON - 345 MG
     Route: 048

REACTIONS (5)
  - Foreign body in gastrointestinal tract [Unknown]
  - Gastrointestinal hypermotility [Unknown]
  - Suspected counterfeit product [Unknown]
  - Product size issue [Unknown]
  - Nausea [Unknown]
